FAERS Safety Report 7886298 (Version 5)
Quarter: 2013Q1

REPORT INFORMATION
  Report Type: Spontaneous
  Country: US (occurrence: US)
  Receive Date: 20110405
  Receipt Date: 20130204
  Transmission Date: 20140127
  Serious: Yes (Other)
  Sender: FDA-Public Use
  Company Number: US-US-EMD SERONO, INC.-7050410

PATIENT
  Sex: Female
  Weight: 75 kg

DRUGS (3)
  1. REBIF [Suspect]
     Indication: MULTIPLE SCLEROSIS
     Route: 058
     Dates: start: 20061031
  2. ASPIRIN [Concomitant]
     Indication: PRODUCT USED FOR UNKNOWN INDICATION
  3. VALTREX [Concomitant]
     Indication: HERPES SIMPLEX
     Dates: start: 201012, end: 201101

REACTIONS (2)
  - Retinal haemorrhage [Recovering/Resolving]
  - Retinal vein thrombosis [Recovered/Resolved with Sequelae]
